FAERS Safety Report 21516679 (Version 1)
Quarter: 2022Q4

REPORT INFORMATION
  Report Type: Spontaneous
  Country: US (occurrence: None)
  Receive Date: 20221027
  Receipt Date: 20221027
  Transmission Date: 20230112
  Serious: Yes (Hospitalization)
  Sender: FDA-Public Use
  Company Number: None

PATIENT
  Age: 51 Year
  Sex: Female

DRUGS (1)
  1. ENBREL [Suspect]
     Active Substance: ETANERCEPT
     Indication: Rheumatoid arthritis
     Route: 058
     Dates: start: 20220601, end: 20221027

REACTIONS (4)
  - Hemiparesis [None]
  - Facial paralysis [None]
  - Transient ischaemic attack [None]
  - Injection site reaction [None]

NARRATIVE: CASE EVENT DATE: 20221012
